FAERS Safety Report 8200269 (Version 2)
Quarter: 2013Q3

REPORT INFORMATION
  Report Type: Report from Study
  Country: MX (occurrence: MX)
  Receive Date: 20111026
  Receipt Date: 20130711
  Transmission Date: 20140515
  Serious: Yes (Hospitalization)
  Sender: FDA-Public Use
  Company Number: PHHY2011MX92018

PATIENT
  Age: 66 Year
  Sex: Female

DRUGS (3)
  1. CO-DIOVAN [Suspect]
     Indication: HYPERTENSION
     Dosage: 1 TABLET (320/12.5 MG) PER DAY
     Dates: start: 200810, end: 201110
  2. INSULIN [Concomitant]
     Dosage: 20 U, UNK
     Dates: start: 201010
  3. JANUVIA [Concomitant]
     Dosage: 1 TABLET PER DAY
     Dates: start: 200210

REACTIONS (3)
  - Emotional disorder [Not Recovered/Not Resolved]
  - Blood pressure increased [Not Recovered/Not Resolved]
  - Blood pressure inadequately controlled [Not Recovered/Not Resolved]
